FAERS Safety Report 9235910 (Version 1)
Quarter: 2013Q2

REPORT INFORMATION
  Report Type: Spontaneous
  Country: US (occurrence: None)
  Receive Date: 20130416
  Receipt Date: 20130416
  Transmission Date: 20140414
  Serious: No
  Sender: FDA-Public Use
  Company Number: None

PATIENT
  Sex: Male
  Weight: 96.16 kg

DRUGS (2)
  1. MODAFINIL [Suspect]
     Indication: MYOFASCIAL PAIN SYNDROME
     Route: 048
     Dates: start: 2007, end: 2008
  2. MODAFINIL [Suspect]
     Indication: HEADACHE
     Route: 048
     Dates: start: 2007, end: 2008

REACTIONS (3)
  - Dizziness [None]
  - Fall [None]
  - Vomiting [None]
